FAERS Safety Report 4903384-0 (Version None)
Quarter: 2006Q1

REPORT INFORMATION
  Report Type: 
  Country: None (occurrence: None)
  Receive Date: 20060203
  Receipt Date: 20060125
  Transmission Date: 20060701
  Serious: Yes (Hospitalization)
  Sender: FDA-Public Use
  Company Number: US016152

PATIENT
  Age: 41 Year
  Sex: Female

DRUGS (6)
  1. TRISENOX [Suspect]
     Indication: ACUTE PROMYELOCYTIC LEUKAEMIA
     Dosage: 7.32 MG QD INTRAVENOUS DRIP
     Route: 041
     Dates: start: 20050927, end: 20051004
  2. TRISENOX [Suspect]
     Indication: ACUTE PROMYELOCYTIC LEUKAEMIA
     Dosage: 7.32 MG QD INTRAVENOUS DRIP
     Route: 041
     Dates: start: 20051011, end: 20051130
  3. FAMOTIDINE [Concomitant]
  4. HEPARIN [Concomitant]
  5. IDARUBICIN HCL [Concomitant]
  6. FUROSEMIDE [Concomitant]

REACTIONS (4)
  - CONDITION AGGRAVATED [None]
  - DISSEMINATED INTRAVASCULAR COAGULATION [None]
  - LEUKOCYTOSIS [None]
  - LEUKOPENIA [None]
